FAERS Safety Report 16733167 (Version 1)
Quarter: 2019Q3

REPORT INFORMATION
  Report Type: Spontaneous
  Country: IT (occurrence: IT)
  Receive Date: 20190823
  Receipt Date: 20190823
  Transmission Date: 20191005
  Serious: Yes (Other)
  Sender: FDA-Public Use
  Company Number: IT-LUPIN PHARMACEUTICALS INC.-2019-05352

PATIENT
  Sex: Female
  Weight: .96 kg

DRUGS (2)
  1. SILDENAFIL. [Suspect]
     Active Substance: SILDENAFIL
     Dosage: 2 MILLIGRAM/KILOGRAM, QID
     Route: 048
  2. SILDENAFIL. [Suspect]
     Active Substance: SILDENAFIL
     Indication: PULMONARY HYPERTENSION
     Dosage: 1 MILLIGRAM/KILOGRAM, QID
     Route: 048

REACTIONS (1)
  - Rectal haemorrhage [Recovered/Resolved]
